FAERS Safety Report 13314236 (Version 1)
Quarter: 2017Q1

REPORT INFORMATION
  Report Type: Report from Study
  Country: VE (occurrence: VE)
  Receive Date: 20170309
  Receipt Date: 20170309
  Transmission Date: 20170428
  Serious: Yes (Other)
  Sender: FDA-Public Use
  Company Number: PHHY2017VE029848

PATIENT
  Sex: Female

DRUGS (3)
  1. EUTIROX [Concomitant]
     Active Substance: LEVOTHYROXINE SODIUM
     Indication: THYROID DISORDER
     Dosage: 100 MG, QD
     Route: 065
  2. TASIGNA [Suspect]
     Active Substance: NILOTINIB
     Indication: CHRONIC MYELOID LEUKAEMIA
     Dosage: 200 MG, QD
     Route: 048
     Dates: start: 20161119
  3. TASIGNA [Suspect]
     Active Substance: NILOTINIB
     Dosage: 800 MG, QD
     Route: 048

REACTIONS (9)
  - Pain [Unknown]
  - Neutrophil count increased [Unknown]
  - Chills [Unknown]
  - Malaise [Unknown]
  - White blood cell count decreased [Unknown]
  - Feeling abnormal [Unknown]
  - Pyrexia [Not Recovered/Not Resolved]
  - Neutrophil count decreased [Unknown]
  - Full blood count decreased [Unknown]
